FAERS Safety Report 7006978-4 (Version None)
Quarter: 2010Q3

REPORT INFORMATION
  Report Type: 
  Country: None (occurrence: None)
  Receive Date: 20100922
  Receipt Date: 20100913
  Transmission Date: 20110219
  Serious: Yes (Hospitalization)
  Sender: FDA-Public Use
  Company Number: JP-JNJFOC-20100701262

PATIENT
  Sex: Male

DRUGS (13)
  1. TOPIRAMATE [Suspect]
     Indication: EPILEPSY
     Route: 048
  2. TOPIRAMATE [Suspect]
     Route: 048
  3. TOPIRAMATE [Suspect]
     Route: 048
  4. TOPIRAMATE [Suspect]
     Route: 048
  5. TOPIRAMATE [Suspect]
     Route: 048
  6. ZONISAMIDE [Suspect]
     Indication: EPILEPSY
     Route: 048
  7. MEROPENEM [Suspect]
     Indication: BRAIN NEOPLASM
  8. GLYCEOL [Suspect]
     Indication: BRAIN NEOPLASM
     Route: 065
  9. VANCOMYCIN HCL [Suspect]
     Indication: BRAIN NEOPLASM
     Route: 065
  10. ROCEPHIN [Concomitant]
     Indication: PRODUCT USED FOR UNKNOWN INDICATION
     Route: 065
  11. DALACIN S [Concomitant]
     Indication: PRODUCT USED FOR UNKNOWN INDICATION
     Route: 065
  12. FLAGYL [Concomitant]
     Indication: PRODUCT USED FOR UNKNOWN INDICATION
     Route: 048
  13. PHENOBARBITAL TAB [Concomitant]
     Indication: EPILEPSY
     Route: 048

REACTIONS (3)
  - CALCULUS URINARY [None]
  - NEUTROPENIA [None]
  - WHITE BLOOD CELL COUNT DECREASED [None]
